FAERS Safety Report 6252074-3 (Version None)
Quarter: 2009Q2

REPORT INFORMATION
  Report Type: 
  Country: None (occurrence: None)
  Receive Date: 20090630
  Receipt Date: 20060123
  Transmission Date: 20091009
  Serious: Yes (Hospitalization)
  Sender: FDA-Public Use
  Company Number: US-ROCHE-638782

PATIENT
  Sex: Male

DRUGS (11)
  1. ENFUVIRTIDE [Suspect]
     Indication: HIV INFECTION
     Route: 065
     Dates: start: 20050610, end: 20060401
  2. ENFUVIRTIDE [Suspect]
     Route: 065
     Dates: start: 20060414, end: 20060901
  3. APTIVUS [Concomitant]
     Dates: start: 20050610, end: 20060401
  4. APTIVUS [Concomitant]
     Dates: start: 20060414, end: 20070511
  5. NORVIR [Concomitant]
     Dates: start: 20050610, end: 20060401
  6. NORVIR [Concomitant]
     Dates: start: 20060414, end: 20070311
  7. TRUVADA [Concomitant]
     Dates: start: 20050610, end: 20060401
  8. TRUVADA [Concomitant]
     Dates: start: 20060414, end: 20070511
  9. BACTRIM DS [Concomitant]
     Dates: start: 20050610, end: 20080801
  10. FLUCONAZOLE [Concomitant]
     Dates: start: 20050610, end: 20080801
  11. ZITHROMAX [Concomitant]
     Dates: start: 20060203, end: 20080801

REACTIONS (2)
  - ADVERSE DRUG REACTION [None]
  - DIARRHOEA [None]
